FAERS Safety Report 19249438 (Version 1)
Quarter: 2021Q2

REPORT INFORMATION
  Report Type: Spontaneous
  Country: AU (occurrence: AU)
  Receive Date: 20210512
  Receipt Date: 20210512
  Transmission Date: 20210717
  Serious: Yes (Hospitalization)
  Sender: FDA-Public Use
  Company Number: AU-ASTRAZENECA-2021A407890

PATIENT
  Age: 17 Year
  Sex: Female
  Weight: 123 kg

DRUGS (1)
  1. FASENRA [Suspect]
     Active Substance: BENRALIZUMAB
     Indication: ASTHMA
     Route: 058
     Dates: start: 20180801

REACTIONS (5)
  - Wheezing [Recovered/Resolved]
  - Adenovirus test positive [Recovered/Resolved]
  - Cough [Recovered/Resolved]
  - Respiratory syncytial virus test positive [Recovered/Resolved]
  - Human rhinovirus test positive [Recovered/Resolved]

NARRATIVE: CASE EVENT DATE: 20190601
